FAERS Safety Report 5281529-3 (Version None)
Quarter: 2007Q1

REPORT INFORMATION
  Report Type: 
  Country: None (occurrence: None)
  Receive Date: 20070330
  Receipt Date: 20070319
  Transmission Date: 20070707
  Serious: Yes (Other)
  Sender: FDA-Public Use
  Company Number: US-NOVOPROD-261530

PATIENT
  Age: 44 Year
  Sex: Female
  Weight: 58.957 kg

DRUGS (1)
  1. LEVEMIR [Suspect]
     Indication: DIABETES MELLITUS INSULIN-DEPENDENT
     Dosage: 28 IU, QD
     Dates: start: 20061001

REACTIONS (3)
  - ANGINA PECTORIS [None]
  - DYSPNOEA [None]
  - REACTION TO DRUG EXCIPIENTS [None]
